FAERS Safety Report 5162442-9 (Version None)
Quarter: 2006Q4

REPORT INFORMATION
  Report Type: 
  Country: None (occurrence: None)
  Receive Date: 20061128
  Receipt Date: 20061128
  Transmission Date: 20070319
  Serious: Yes (Other)
  Sender: FDA-Public Use
  Company Number: None

PATIENT
  Age: 51 Year
  Sex: Male
  Weight: 117.9352 kg

DRUGS (5)
  1. METOPROLOL SUCCINATE EXTENDED RELEASE [Suspect]
     Indication: BLOOD PRESSURE
     Dosage: 50MG QD
     Dates: start: 20060119
  2. WARFARIN SODIUM [Concomitant]
  3. FELODIPINE [Concomitant]
  4. HYDROCORTISONE CREAM [Concomitant]
  5. PROCTOFOAM [Concomitant]

REACTIONS (1)
  - RASH [None]
